FAERS Safety Report 13767239 (Version 1)
Quarter: 2017Q3

REPORT INFORMATION
  Report Type: Report from Study
  Country: None (occurrence: BR)
  Receive Date: 20170719
  Receipt Date: 20170719
  Transmission Date: 20171127
  Serious: Yes (Disabling)
  Sender: FDA-Public Use
  Company Number: BR-ABBVIE-16K-020-1811424-00

PATIENT
  Age: 46 Year
  Sex: Male
  Weight: 130 kg

DRUGS (12)
  1. PREDNISONE. [Concomitant]
     Active Substance: PREDNISONE
     Route: 048
     Dates: start: 201611
  2. VOLTAREN [Concomitant]
     Active Substance: DICLOFENAC SODIUM
     Indication: ARTHRALGIA
     Route: 048
     Dates: end: 2016
  3. BETATRINTA [Concomitant]
     Active Substance: BETAMETHASONE DIPROPIONATE\BETAMETHASONE SODIUM PHOSPHATE
     Indication: ARTHRALGIA
     Route: 042
     Dates: end: 201704
  4. MORPHINE [Concomitant]
     Active Substance: MORPHINE
     Indication: ARTHRALGIA
     Dosage: ONE INJECTION
     Dates: start: 2016, end: 2016
  5. ALBENDAZOLE [Concomitant]
     Active Substance: ALBENDAZOLE
     Indication: PAIN
  6. TAPAZOL [Concomitant]
     Indication: THYROID DISORDER
     Route: 048
     Dates: start: 2010
  7. BENZETACIL [Concomitant]
     Indication: ARTHRALGIA
  8. HUMIRA [Suspect]
     Active Substance: ADALIMUMAB
     Indication: RHEUMATOID ARTHRITIS
     Route: 058
     Dates: start: 20161125, end: 201701
  9. PREDNISONE. [Concomitant]
     Active Substance: PREDNISONE
     Indication: PAIN
     Route: 048
  10. OMEPRAZOLE. [Concomitant]
     Active Substance: OMEPRAZOLE
     Indication: GASTRIC DISORDER
     Route: 048
     Dates: start: 2015
  11. PARACETAMOL [Concomitant]
     Active Substance: ACETAMINOPHEN
     Indication: PAIN
     Route: 048
     Dates: start: 201611
  12. TANDERALGIN [Concomitant]
     Indication: ARTHRITIS
     Route: 048
     Dates: start: 2016

REACTIONS (8)
  - Head injury [Recovered/Resolved]
  - Arthralgia [Recovering/Resolving]
  - Spinal disorder [Unknown]
  - Rheumatoid arthritis [Recovering/Resolving]
  - Pain in extremity [Unknown]
  - Fall [Recovered/Resolved]
  - Inappropriate schedule of drug administration [Unknown]
  - Gait inability [Recovering/Resolving]

NARRATIVE: CASE EVENT DATE: 2016
